FAERS Safety Report 20484315 (Version 3)
Quarter: 2022Q1

REPORT INFORMATION
  Report Type: Spontaneous
  Country: US (occurrence: US)
  Receive Date: 20220217
  Receipt Date: 20220330
  Transmission Date: 20220423
  Serious: No
  Sender: FDA-Public Use
  Company Number: US-JNJFOC-20220200964

PATIENT
  Age: 60 Year
  Sex: Female

DRUGS (1)
  1. TREMFYA [Suspect]
     Active Substance: GUSELKUMAB
     Indication: Product used for unknown indication
     Route: 065
     Dates: start: 20210528

REACTIONS (4)
  - Product leakage [Unknown]
  - Product dose omission issue [Unknown]
  - Device issue [Unknown]
  - Needle issue [Unknown]

NARRATIVE: CASE EVENT DATE: 20220128
